FAERS Safety Report 10243659 (Version 1)
Quarter: 2014Q2

REPORT INFORMATION
  Report Type: Spontaneous
  Country: US (occurrence: None)
  Receive Date: 20140616
  Receipt Date: 20140616
  Transmission Date: 20141212
  Serious: Yes (Hospitalization)
  Sender: FDA-Public Use
  Company Number: None

PATIENT
  Age: 62 Year
  Sex: Male
  Weight: 74.1 kg

DRUGS (1)
  1. ZIPRASIDONE [Suspect]
     Indication: SCHIZOPHRENIA
     Route: 058
     Dates: start: 20140603, end: 20140603

REACTIONS (2)
  - Syncope [None]
  - Bradycardia [None]
